FAERS Safety Report 7184082-2 (Version None)
Quarter: 2010Q4

REPORT INFORMATION
  Report Type: 
  Country: None (occurrence: None)
  Receive Date: 20101222
  Receipt Date: 20101213
  Transmission Date: 20110411
  Serious: Yes (Other)
  Sender: FDA-Public Use
  Company Number: PHHY2010FR85366

PATIENT
  Sex: Female

DRUGS (1)
  1. LAMISIL [Suspect]
     Dosage: 1 DF DAILY
     Route: 048
     Dates: start: 20091030

REACTIONS (3)
  - BLOOD THYROID STIMULATING HORMONE DECREASED [None]
  - HYPOTHYROIDISM [None]
  - THYROIDITIS [None]
